FAERS Safety Report 6312261-2 (Version None)
Quarter: 2009Q3

REPORT INFORMATION
  Report Type: 
  Country: None (occurrence: None)
  Receive Date: 20090817
  Receipt Date: 20090810
  Transmission Date: 20100115
  Serious: Yes (Hospitalization, Other)
  Sender: FDA-Public Use
  Company Number: BR-ASTRAZENECA-2009SE07524

PATIENT
  Age: 60 Year
  Sex: Female

DRUGS (3)
  1. ARIMIDEX [Suspect]
     Indication: BREAST CANCER
     Route: 048
     Dates: start: 20090601, end: 20090805
  2. PROPRANOLOL [Suspect]
     Indication: BLOOD PRESSURE FLUCTUATION
     Route: 048
     Dates: start: 20070101
  3. INDIA PLANT [Concomitant]
     Indication: ARTHRITIS
     Route: 048
     Dates: start: 20080101

REACTIONS (6)
  - ARTHRALGIA [None]
  - BREAST CANCER [None]
  - MUSCULAR WEAKNESS [None]
  - NAUSEA [None]
  - SOMNOLENCE [None]
  - VARICOSE VEIN [None]
